FAERS Safety Report 22258561 (Version 1)
Quarter: 2023Q2

REPORT INFORMATION
  Report Type: Report from Study
  Country: US (occurrence: US)
  Receive Date: 20230427
  Receipt Date: 20230427
  Transmission Date: 20230722
  Serious: Yes (Hospitalization)
  Sender: FDA-Public Use
  Company Number: US-GILEAD-2023-0626003

PATIENT
  Age: 63 Year
  Sex: Female
  Weight: 52.6 kg

DRUGS (3)
  1. SACITUZUMAB GOVITECAN-HZIY [Suspect]
     Active Substance: SACITUZUMAB GOVITECAN-HZIY
     Indication: Breast cancer metastatic
     Dosage: UNK
     Route: 042
     Dates: start: 20230120, end: 20230125
  2. SACITUZUMAB GOVITECAN-HZIY [Suspect]
     Active Substance: SACITUZUMAB GOVITECAN-HZIY
     Dosage: UNK
     Route: 042
     Dates: start: 20230215, end: 20230322
  3. XELODA [Concomitant]
     Active Substance: CAPECITABINE
     Dosage: UNK
     Dates: start: 202109

REACTIONS (1)
  - Hypercalcaemia [Unknown]

NARRATIVE: CASE EVENT DATE: 20230323
